FAERS Safety Report 8715348 (Version 4)
Quarter: 2013Q4

REPORT INFORMATION
  Report Type: Report from Study
  Country: US (occurrence: US)
  Receive Date: 20120809
  Receipt Date: 20131024
  Transmission Date: 20140711
  Serious: Yes (Other)
  Sender: FDA-Public Use
  Company Number: US-GLAXOSMITHKLINE-A0988798A

PATIENT
  Sex: Female

DRUGS (3)
  1. INFLUENZA VACCINE UNSPECIFIED 2013-2014 SEASON [Suspect]
     Indication: PROPHYLAXIS
     Route: 065
     Dates: start: 2013, end: 2013
  2. VENTOLIN HFA [Suspect]
     Indication: CHRONIC OBSTRUCTIVE PULMONARY DISEASE
     Route: 065
  3. UNSPECIFIED MEDICATION [Suspect]
     Indication: PRODUCT USED FOR UNKNOWN INDICATION

REACTIONS (10)
  - Pulmonary hypertension [Unknown]
  - Diverticulitis [Unknown]
  - Dyspnoea [Unknown]
  - Adverse event [Unknown]
  - Chronic obstructive pulmonary disease [Unknown]
  - Abdominal distension [Unknown]
  - Abdominal pain upper [Unknown]
  - Dyspnoea exertional [Unknown]
  - Nonspecific reaction [Unknown]
  - Influenza like illness [Unknown]
